FAERS Safety Report 23102607 (Version 2)
Quarter: 2023Q4

REPORT INFORMATION
  Report Type: Spontaneous
  Country: US (occurrence: US)
  Receive Date: 20231025
  Receipt Date: 20231103
  Transmission Date: 20240109
  Serious: Yes (Other)
  Sender: FDA-Public Use
  Company Number: US-BAXTER-2023BAX031985

PATIENT
  Age: 64 Year
  Sex: Male

DRUGS (3)
  1. DIANEAL [Suspect]
     Active Substance: CALCIUM CHLORIDE\DEXTROSE\MAGNESIUM CHLORIDE\SODIUM CHLORIDE\SODIUM LACTATE
     Route: 033
  2. EXTRANEAL [Suspect]
     Active Substance: CALCIUM CHLORIDE\ICODEXTRIN\MAGNESIUM CHLORIDE\SODIUM CHLORIDE\SODIUM LACTATE
     Route: 033
  3. CEFAZOLIN [Concomitant]
     Active Substance: CEFAZOLIN
     Indication: Prophylaxis
     Dosage: UNTIL 5 DAYS
     Route: 065
     Dates: start: 20230923

REACTIONS (3)
  - Peritonitis bacterial [Recovered/Resolved]
  - Peritoneal cloudy effluent [Unknown]
  - Abdominal pain [Unknown]

NARRATIVE: CASE EVENT DATE: 20230920
